FAERS Safety Report 9853466 (Version 1)
Quarter: 2014Q1

REPORT INFORMATION
  Report Type: Spontaneous
  Country: BR (occurrence: BR)
  Receive Date: 20140129
  Receipt Date: 20140129
  Transmission Date: 20141002
  Serious: Yes (Hospitalization)
  Sender: FDA-Public Use
  Company Number: BR-GLAXOSMITHKLINE-A1058720A

PATIENT
  Age: 70 Year
  Sex: Female
  Weight: 73 kg

DRUGS (2)
  1. SERETIDE [Suspect]
     Indication: ASTHMA
     Dosage: 1PUFF TWICE PER DAY
     Route: 065
  2. FORASEQ [Concomitant]

REACTIONS (4)
  - Asthmatic crisis [Recovered/Resolved]
  - Wrist fracture [Recovered/Resolved]
  - Fall [Unknown]
  - Surgery [Unknown]
